FAERS Safety Report 23882461 (Version 2)
Quarter: 2024Q2

REPORT INFORMATION
  Report Type: Spontaneous
  Country: JP (occurrence: JP)
  Receive Date: 20240522
  Receipt Date: 20240529
  Transmission Date: 20240715
  Serious: Yes (Other)
  Sender: FDA-Public Use
  Company Number: JP-HALEON-2175245

PATIENT
  Age: 6 Decade
  Sex: Male

DRUGS (1)
  1. ALLI [Suspect]
     Active Substance: ORLISTAT
     Indication: Fat tissue decreased
     Dosage: AMOUNT OF DAILY DOSE (1 DOSE X 1 NUMBER OF TIMES PER DAY): UNK?DURATION OF USE: ONE MONTH
     Dates: end: 20240511

REACTIONS (3)
  - Haematochezia [Recovered/Resolved]
  - Anorectal swelling [Recovered/Resolved]
  - Anal haemorrhage [Recovered/Resolved]

NARRATIVE: CASE EVENT DATE: 20240510
